FAERS Safety Report 15424118 (Version 1)
Quarter: 2018Q3

REPORT INFORMATION
  Report Type: Report from Study
  Country: CA (occurrence: CA)
  Receive Date: 20180925
  Receipt Date: 20180925
  Transmission Date: 20181010
  Serious: Yes (Death, Other)
  Sender: FDA-Public Use
  Company Number: PHHY2016CA136920

PATIENT
  Age: 58 Year
  Sex: Male

DRUGS (2)
  1. ZYKADIA [Suspect]
     Active Substance: CERITINIB
     Indication: NON-SMALL CELL LUNG CANCER
     Dosage: 750 MG, QD
     Route: 048
     Dates: start: 20160930
  2. ZYKADIA [Interacting]
     Active Substance: CERITINIB
     Dosage: 450 MG, QD (3 CAPSULES A DAY)
     Route: 048
     Dates: end: 201805

REACTIONS (25)
  - Osteosclerosis [Unknown]
  - Dizziness [Unknown]
  - Non-small cell lung cancer stage IV [Unknown]
  - Malignant neoplasm progression [Unknown]
  - Musculoskeletal pain [Unknown]
  - Paraesthesia [Unknown]
  - Vision blurred [Recovered/Resolved]
  - Metastases to bone [Unknown]
  - Musculoskeletal discomfort [Unknown]
  - Death [Fatal]
  - Arthralgia [Unknown]
  - Drug interaction [Unknown]
  - Grip strength decreased [Unknown]
  - Fall [Unknown]
  - Balance disorder [Unknown]
  - Vomiting [Recovering/Resolving]
  - Metastases to central nervous system [Recovering/Resolving]
  - Paralysis [Unknown]
  - Musculoskeletal stiffness [Unknown]
  - Abdominal pain upper [Unknown]
  - Exostosis [Unknown]
  - Muscular weakness [Unknown]
  - Abdominal discomfort [Unknown]
  - Nausea [Unknown]
  - Diarrhoea [Recovering/Resolving]

NARRATIVE: CASE EVENT DATE: 20170622
